FAERS Safety Report 4325611-3 (Version None)
Quarter: 2004Q1

REPORT INFORMATION
  Report Type: 
  Country: None (occurrence: None)
  Receive Date: 20040324
  Receipt Date: 20040311
  Transmission Date: 20041129
  Serious: Yes (Disabling)
  Sender: FDA-Public Use
  Company Number: UK069089

PATIENT
  Age: 56 Year
  Sex: Female

DRUGS (3)
  1. NEUPOGEN [Suspect]
     Indication: CHEMOTHERAPY
     Dosage: 6 MG, SC
     Route: 058
     Dates: start: 20031104, end: 20031104
  2. EPIRUBICIN [Suspect]
     Dosage: 165 MG, IV
     Route: 042
     Dates: start: 20031104, end: 20031104
  3. CYCLOPHOSPHAMIDE [Suspect]
     Dosage: 1100 MG, IV
     Route: 042
     Dates: start: 20031104, end: 20031104

REACTIONS (1)
  - THROMBOPHLEBITIS SUPERFICIAL [None]
